FAERS Safety Report 5314239-4 (Version None)
Quarter: 2007Q2

REPORT INFORMATION
  Report Type: 
  Country: None (occurrence: None)
  Receive Date: 20070425
  Receipt Date: 20070413
  Transmission Date: 20071010
  Serious: Yes (Life-Threatening)
  Sender: FDA-Public Use
  Company Number: 2007-01068

PATIENT
  Age: 71 Year
  Sex: Male
  Weight: 89.3 kg

DRUGS (1)
  1. VELCADE [Suspect]
     Indication: LYMPHOMA
     Dosage: 2.6 MG, UNK, INTRAVENOUS
     Route: 042
     Dates: start: 20051205, end: 20060515

REACTIONS (3)
  - ACUTE MYELOID LEUKAEMIA [None]
  - MYELODYSPLASTIC SYNDROME [None]
  - PANCYTOPENIA [None]
